FAERS Safety Report 9415001 (Version 2)
Quarter: 2013Q3

REPORT INFORMATION
  Report Type: Spontaneous
  Country: FR (occurrence: FR)
  Receive Date: 20130723
  Receipt Date: 20130726
  Transmission Date: 20140515
  Serious: Yes (Hospitalization)
  Sender: FDA-Public Use
  Company Number: FR-SANOFI-AVENTIS-2013SA071848

PATIENT
  Age: 66 Year
  Sex: Male

DRUGS (10)
  1. LOVENOX [Suspect]
     Indication: PRODUCT USED FOR UNKNOWN INDICATION
     Route: 058
     Dates: start: 20130222, end: 20130226
  2. GENTAMICIN [Suspect]
     Indication: PRODUCT USED FOR UNKNOWN INDICATION
     Route: 042
     Dates: start: 20130225, end: 20130227
  3. ORBENINE [Suspect]
     Indication: PRODUCT USED FOR UNKNOWN INDICATION
     Route: 042
     Dates: start: 20130225, end: 20130308
  4. VIALEBEX [Suspect]
     Indication: PRODUCT USED FOR UNKNOWN INDICATION
     Route: 042
     Dates: start: 20130223, end: 20130228
  5. CEFTRIAXONE [Suspect]
     Indication: PRODUCT USED FOR UNKNOWN INDICATION
     Route: 042
     Dates: start: 20130222, end: 20130228
  6. ALDACTONE [Suspect]
     Indication: PRODUCT USED FOR UNKNOWN INDICATION
     Dosage: STRENGTH: 50 MG TABLET
     Route: 048
     Dates: end: 20130227
  7. ATENOLOL [Suspect]
     Indication: PRODUCT USED FOR UNKNOWN INDICATION
     Route: 065
     Dates: end: 20130227
  8. ACUILIX [Suspect]
     Indication: PRODUCT USED FOR UNKNOWN INDICATION
     Dosage: STRENGTH: 20 MG/12.5 MG TABLET?DOSE: 20 MG/12.5 MG QD
     Route: 048
     Dates: end: 20130227
  9. INEXIUM [Concomitant]
  10. SIMVASTATIN [Concomitant]

REACTIONS (6)
  - Renal failure acute [Recovering/Resolving]
  - Oliguria [Recovering/Resolving]
  - Hyperkalaemia [Recovering/Resolving]
  - Blood urea increased [Recovering/Resolving]
  - Blood creatinine increased [Recovering/Resolving]
  - Creatinine renal clearance decreased [Recovering/Resolving]
